FAERS Safety Report 8368888-X (Version None)
Quarter: 2012Q2

REPORT INFORMATION
  Report Type: 
  Country: None (occurrence: None)
  Receive Date: 20120516
  Receipt Date: 20120507
  Transmission Date: 20120825
  Serious: Yes (Other)
  Sender: FDA-Public Use
  Company Number: 2012MA004394

PATIENT
  Age: 33 Year
  Sex: Male

DRUGS (11)
  1. RIBAVIRIN [Suspect]
     Indication: HEPATITIS C
     Dosage: 1200 MG;PO
     Route: 048
     Dates: start: 20110516
  2. VENLAFAXINE [Concomitant]
  3. INTERFERON [Concomitant]
  4. BECLOMETHASONE DIPROPIONATE [Concomitant]
  5. CALCICHEW D3 [Concomitant]
  6. PEGINTERFERON ALFA-2A [Concomitant]
  7. RAMIPRIL [Suspect]
     Indication: HYPERTENSION
     Dosage: 2.5 MG;QD
     Dates: start: 20110822
  8. MOVIPREP [Concomitant]
  9. OMEPRAZOLE [Concomitant]
  10. CLOZAPINE [Suspect]
     Dosage: PO
     Route: 048
     Dates: start: 20111025, end: 20120401
  11. CLOZAPINE [Concomitant]

REACTIONS (3)
  - NEUTROPENIA [None]
  - WHITE BLOOD CELL COUNT DECREASED [None]
  - DRUG INTERACTION [None]
